FAERS Safety Report 8690944 (Version 7)
Quarter: 2015Q4

REPORT INFORMATION
  Report Type: Report from Study
  Country: US (occurrence: US)
  Receive Date: 20120730
  Receipt Date: 20151022
  Transmission Date: 20160305
  Serious: Yes (Hospitalization, Other)
  Sender: FDA-Public Use
  Company Number: US-BIOGENIDEC-2012BI026321

PATIENT
  Age: 44 Year
  Sex: Female

DRUGS (3)
  1. AVONEX [Suspect]
     Active Substance: INTERFERON BETA-1A
     Indication: MULTIPLE SCLEROSIS
     Route: 030
     Dates: start: 20000310
  2. SOLU-MEDROL [Concomitant]
     Active Substance: METHYLPREDNISOLONE SODIUM SUCCINATE
  3. METHOTHEXATE [Concomitant]

REACTIONS (17)
  - Renal impairment [Unknown]
  - Hypertension [Recovered/Resolved]
  - Sinusitis [Recovered/Resolved]
  - Dehydration [Unknown]
  - Central nervous system infection [Recovered/Resolved]
  - Chondropathy [Unknown]
  - Vitamin D decreased [Not Recovered/Not Resolved]
  - Feeling abnormal [Unknown]
  - Ear neoplasm malignant [Not Recovered/Not Resolved]
  - Blood glucose increased [Unknown]
  - Vitamin B12 decreased [Not Recovered/Not Resolved]
  - Pain [Not Recovered/Not Resolved]
  - Abdominal discomfort [Recovered/Resolved]
  - Weight decreased [Recovered/Resolved]
  - Secondary progressive multiple sclerosis [Unknown]
  - Loss of consciousness [Unknown]
  - Diabetes mellitus [Recovered/Resolved]

NARRATIVE: CASE EVENT DATE: 200003
